FAERS Safety Report 8559663 (Version 2)
Quarter: 2012Q4

REPORT INFORMATION
  Report Type: 
  Country: US (occurrence: US)
  Receive Date: 20120514
  Receipt Date: 20121031
  Transmission Date: 20130627
  Serious: Yes (Hospitalization)
  Sender: FDA-Public Use
  Company Number: US-BAYER-2012-045836

PATIENT
  Age: 45 Year
  Sex: Female

DRUGS (5)
  1. YAZ [Suspect]
     Indication: MENOMETRORRHAGIA
  2. YAZ [Suspect]
     Indication: BIRTH CONTROL
  3. YASMIN [Suspect]
  4. ACYCLOVIR [ACICLOVIR] [Concomitant]
     Dosage: 400 mg, UNK
     Route: 048
     Dates: start: 20000501, end: 20101027
  5. VALTREX [Concomitant]

REACTIONS (8)
  - Deep vein thrombosis [Recovered/Resolved]
  - Injury [Recovered/Resolved]
  - Pain [Recovered/Resolved]
  - Anxiety [None]
  - Anhedonia [None]
  - Fear [None]
  - Quality of life decreased [None]
  - Emotional distress [None]
